FAERS Safety Report 9648446 (Version 1)
Quarter: 2013Q4

REPORT INFORMATION
  Report Type: Spontaneous
  Country: US (occurrence: US)
  Receive Date: 20131028
  Receipt Date: 20131028
  Transmission Date: 20140711
  Serious: Yes (Other)
  Sender: FDA-Public Use
  Company Number: US-BAYER-2013-130644

PATIENT
  Sex: Female

DRUGS (1)
  1. MIRENA [Suspect]
     Indication: CONTRACEPTION
     Dosage: 20 ?G/D, CONT
     Route: 015
     Dates: start: 201110

REACTIONS (6)
  - Device dislocation [None]
  - Embedded device [None]
  - Dyspareunia [Not Recovered/Not Resolved]
  - Abdominal pain [None]
  - Pelvic pain [None]
  - Device difficult to use [None]
